FAERS Safety Report 16861550 (Version 1)
Quarter: 2019Q3

REPORT INFORMATION
  Report Type: Report from Study
  Country: IN (occurrence: IN)
  Receive Date: 20190927
  Receipt Date: 20190927
  Transmission Date: 20191005
  Serious: Yes (Hospitalization, Other)
  Sender: FDA-Public Use
  Company Number: PHHY2018IN032518

PATIENT
  Age: 50 Year
  Sex: Male
  Weight: 100 kg

DRUGS (6)
  1. VOTRIENT [Suspect]
     Active Substance: PAZOPANIB HYDROCHLORIDE
     Dosage: 400 MG, QD
     Route: 048
     Dates: start: 20180703, end: 20180908
  2. VOTRIENT [Suspect]
     Active Substance: PAZOPANIB HYDROCHLORIDE
     Dosage: 200 MG, BID
     Route: 048
     Dates: start: 20190920
  3. VOTRIENT [Suspect]
     Active Substance: PAZOPANIB HYDROCHLORIDE
     Indication: RENAL CELL CARCINOMA
     Dosage: 800 MG, QD
     Route: 048
     Dates: start: 20180424, end: 20180610
  4. VOTRIENT [Suspect]
     Active Substance: PAZOPANIB HYDROCHLORIDE
     Dosage: 400 MG, QD
     Route: 048
     Dates: start: 20181001, end: 20181005
  5. VOTRIENT [Suspect]
     Active Substance: PAZOPANIB HYDROCHLORIDE
     Dosage: 200 MG, BID
     Route: 048
     Dates: start: 20181006, end: 20190820
  6. VOTRIENT [Suspect]
     Active Substance: PAZOPANIB HYDROCHLORIDE
     Indication: METASTATIC RENAL CELL CARCINOMA
     Dosage: 600 MG, QD
     Route: 048
     Dates: start: 20180612, end: 20180702

REACTIONS (8)
  - Stomatitis [Not Recovered/Not Resolved]
  - Rash [Not Recovered/Not Resolved]
  - Jaundice [Not Recovered/Not Resolved]
  - Wrong technique in product usage process [Unknown]
  - Tuberculosis [Not Recovered/Not Resolved]
  - Back pain [Not Recovered/Not Resolved]
  - Product prescribing error [Unknown]
  - Diarrhoea [Not Recovered/Not Resolved]

NARRATIVE: CASE EVENT DATE: 20180608
